FAERS Safety Report 8327646-2 (Version None)
Quarter: 2012Q2

REPORT INFORMATION
  Report Type: 
  Country: None (occurrence: None)
  Receive Date: 20120502
  Receipt Date: 20120425
  Transmission Date: 20120825
  Serious: No
  Sender: FDA-Public Use
  Company Number: US-BAYER-2012-042039

PATIENT
  Age: 72 Year
  Sex: Female
  Weight: 50 kg

DRUGS (1)
  1. NAPROXEN SODIUM [Suspect]
     Indication: BACK PAIN
     Dosage: 2 UNITS USED ONLY ONE TIME
     Route: 048
     Dates: start: 20120424, end: 20120425

REACTIONS (3)
  - ABDOMINAL DISCOMFORT [None]
  - PALPITATIONS [None]
  - INSOMNIA [None]
